FAERS Safety Report 8439760-1 (Version None)
Quarter: 2012Q2

REPORT INFORMATION
  Report Type: 
  Country: None (occurrence: None)
  Receive Date: 20120615
  Receipt Date: 20120608
  Transmission Date: 20120825
  Serious: Yes (Hospitalization)
  Sender: FDA-Public Use
  Company Number: FR-SANOFI-AVENTIS-2012SA041227

PATIENT
  Age: 66 Year
  Sex: Female

DRUGS (7)
  1. MEDIVEINE [Concomitant]
  2. MINOXIDIL [Concomitant]
  3. PLAQUENIL [Suspect]
     Indication: SCLERODERMA
     Route: 048
     Dates: start: 20110601, end: 20111101
  4. CHLORMADINONE ACETATE TAB [Concomitant]
  5. HAVLANE [Concomitant]
  6. ESTREVA [Concomitant]
  7. LEVOTHYROXINE SODIUM [Concomitant]

REACTIONS (4)
  - HAEMATOMA [None]
  - RECTAL HAEMORRHAGE [None]
  - IDIOPATHIC THROMBOCYTOPENIC PURPURA [None]
  - EPISTAXIS [None]
